FAERS Safety Report 4336134-X (Version None)
Quarter: 2004Q2

REPORT INFORMATION
  Report Type: 
  Country: None (occurrence: None)
  Receive Date: 20040407
  Receipt Date: 20040323
  Transmission Date: 20050107
  Serious: Yes (Hospitalization)
  Sender: FDA-Public Use
  Company Number: A04200400273

PATIENT
  Age: 31 Year
  Sex: Female

DRUGS (1)
  1. ARIXTRA [Suspect]
     Dosage: 2.5 MG ONCE  SUBCUTANEOUS
     Route: 058
     Dates: start: 20040301, end: 20040301

REACTIONS (1)
  - ANAPHYLACTIC SHOCK [None]
